FAERS Safety Report 16926348 (Version 2)
Quarter: 2019Q4

REPORT INFORMATION
  Report Type: Spontaneous
  Country: US (occurrence: US)
  Receive Date: 20191016
  Receipt Date: 20191126
  Transmission Date: 20200122
  Serious: No
  Sender: FDA-Public Use
  Company Number: US-ASTRAZENECA-2019SF34143

PATIENT
  Age: 22358 Day
  Sex: Female
  Weight: 110.7 kg

DRUGS (3)
  1. METFORMIN [Concomitant]
     Active Substance: METFORMIN HYDROCHLORIDE
     Indication: DIABETES MELLITUS
     Dosage: 1000 MG TWO TIMES A DAY AND 500 MG ONCE A DAY (THREE TIMES A DAY)
     Route: 048
  2. BYDUREON [Suspect]
     Active Substance: EXENATIDE
     Indication: DIABETES MELLITUS INADEQUATE CONTROL
     Route: 058
     Dates: start: 201810
  3. GLYPIZIDE [Concomitant]
     Active Substance: GLIPIZIDE
     Indication: DIABETES MELLITUS
     Route: 048

REACTIONS (4)
  - Injection site pain [Unknown]
  - Injection site mass [Unknown]
  - Incorrect dose administered [Unknown]
  - Device malfunction [Unknown]

NARRATIVE: CASE EVENT DATE: 20190916
